FAERS Safety Report 6987470-X (Version None)
Quarter: 2010Q3

REPORT INFORMATION
  Report Type: 
  Country: None (occurrence: None)
  Receive Date: 20100916
  Receipt Date: 20100908
  Transmission Date: 20110219
  Serious: Yes (Hospitalization)
  Sender: FDA-Public Use
  Company Number: US-ASTRAZENECA-2010SE23649

PATIENT
  Age: 74 Year
  Sex: Female
  Weight: 55.3 kg

DRUGS (7)
  1. SYMBICORT [Suspect]
     Indication: DYSPNOEA
     Dosage: 2 PUFF, 320 MCG BID
     Route: 055
     Dates: start: 20080101
  2. SYMBICORT [Suspect]
     Dosage: 2 PUFF, 320 MCG BID
     Route: 055
     Dates: start: 20080101
  3. COMBIVENT [Concomitant]
     Indication: DYSPNOEA
     Dosage: 3 PUFFS THREE TIMES A DAY
     Route: 055
  4. WARFARIN SODIUM [Concomitant]
  5. DILTIAZEM [Concomitant]
  6. PACERONE [Concomitant]
  7. SPIRIVA [Concomitant]

REACTIONS (4)
  - CARDIAC DISORDER [None]
  - DRUG INEFFECTIVE [None]
  - DYSPNOEA [None]
  - HEART RATE ABNORMAL [None]
